FAERS Safety Report 4533086-4 (Version None)
Quarter: 2004Q4

REPORT INFORMATION
  Report Type: 
  Country: None (occurrence: None)
  Receive Date: 20041210
  Receipt Date: 20040913
  Transmission Date: 20050328
  Serious: No
  Sender: FDA-Public Use
  Company Number: 2004-00515

PATIENT
  Age: 47 Year
  Sex: Male
  Weight: 100.7 kg

DRUGS (9)
  1. VELCADE [Suspect]
     Indication: MULTIPLE MYELOMA
     Dates: start: 20040824
  2. CARDURA [Concomitant]
  3. TOPROL-XL [Concomitant]
  4. CLONIDINE [Concomitant]
  5. MULTIVITAMIN [Concomitant]
  6. RENAGEL [Concomitant]
  7. GENERLAC (LACTULOSE) [Concomitant]
  8. SODIUM BICARBONATE IN PLASTIC CONTAINER [Concomitant]
  9. PROCRIT (ERYTHROPOIETIN) [Concomitant]

REACTIONS (1)
  - OEDEMA PERIPHERAL [None]
